FAERS Safety Report 4604909-5 (Version None)
Quarter: 2005Q1

REPORT INFORMATION
  Report Type: 
  Country: None (occurrence: None)
  Receive Date: 20050311
  Receipt Date: 20050304
  Transmission Date: 20050727
  Serious: Yes (Other)
  Sender: FDA-Public Use
  Company Number: PHFR2005GB01107

PATIENT
  Sex: Female

DRUGS (1)
  1. PARLODEL [Suspect]
     Route: 065

REACTIONS (4)
  - DRUG EXPOSURE DURING PREGNANCY [None]
  - DYSPNOEA EXACERBATED [None]
  - HYPERTHYROIDISM [None]
  - PALPITATIONS [None]
